FAERS Safety Report 6605215-X (Version None)
Quarter: 2010Q1

REPORT INFORMATION
  Report Type: 
  Country: None (occurrence: None)
  Receive Date: 20100226
  Receipt Date: 20100218
  Transmission Date: 20100710
  Serious: Yes (Hospitalization, Other)
  Sender: FDA-Public Use
  Company Number: US-BAYER-201014433NA

PATIENT
  Age: 8 Year
  Sex: Male

DRUGS (1)
  1. CIPRO [Suspect]
     Indication: URINARY TRACT INFECTION

REACTIONS (7)
  - ASTHENIA [None]
  - DIPLOPIA [None]
  - DIZZINESS [None]
  - DYSKINESIA [None]
  - MYOCLONUS [None]
  - RASH [None]
  - VISION BLURRED [None]
